FAERS Safety Report 10217246 (Version 1)
Quarter: 2014Q1

REPORT INFORMATION
  Report Type: Spontaneous
  Country: US (occurrence: None)
  Receive Date: 20140306
  Receipt Date: 20140306
  Transmission Date: 20141002
  Serious: Yes (Other)
  Sender: FDA-Public Use
  Company Number: 163-21880-13044857

PATIENT
  Sex: Male
  Weight: 85.54 kg

DRUGS (9)
  1. REVLIMID [Suspect]
     Indication: PLASMA CELL MYELOMA
     Dosage: 15 MG, 21 IN 28 D, PO
     Route: 048
     Dates: start: 201208
  2. ACYCLOVIR (ACICLOVIR) [Concomitant]
  3. WARFARIN (WARFARIN) [Concomitant]
  4. ALBUTEROL (SALBUTAMOL) (INHALANT) [Concomitant]
  5. ZOLEDRONIC ACID (ZOLEDRONIC ACID) [Concomitant]
  6. OMEPRAZOLE (OMEPRAZOLE) [Concomitant]
  7. OXYCODONE (OXYCODONE) [Concomitant]
  8. LABETALOL (LABETALOL) [Concomitant]
  9. ALLOPURINOL (ALLOPURINOL) [Concomitant]

REACTIONS (1)
  - Pancytopenia [None]
